FAERS Safety Report 5087947-0 (Version None)
Quarter: 2006Q3

REPORT INFORMATION
  Report Type: 
  Country: None (occurrence: None)
  Receive Date: 20060821
  Receipt Date: 20060807
  Transmission Date: 20061208
  Serious: No
  Sender: FDA-Public Use
  Company Number: 06H-163-0309578-00

PATIENT
  Age: 81 Year
  Sex: Female

DRUGS (1)
  1. FENTANYL CITRATE [Suspect]
     Indication: PAIN MANAGEMENT
     Dosage: 100 MCG, TWICE, INTRAVENOUS
     Route: 042

REACTIONS (2)
  - GLASGOW COMA SCALE ABNORMAL [None]
  - RESPIRATORY DEPRESSION [None]
